FAERS Safety Report 10601746 (Version 1)
Quarter: 2014Q4

REPORT INFORMATION
  Report Type: Spontaneous
  Country: FR (occurrence: FR)
  Receive Date: 20141124
  Receipt Date: 20141124
  Transmission Date: 20150529
  Serious: Yes (Hospitalization, Other)
  Sender: FDA-Public Use
  Company Number: PHHY2014FR149020

PATIENT
  Age: 29 Year
  Sex: Male

DRUGS (3)
  1. RITALINE LP [Suspect]
     Active Substance: METHYLPHENIDATE HYDROCHLORIDE
     Indication: PSYCHOTIC DISORDER
     Dosage: 120 MG, QD
     Route: 042
  2. RITALINE LP [Suspect]
     Active Substance: METHYLPHENIDATE HYDROCHLORIDE
     Indication: EXHIBITIONISM
  3. RITALINE LP [Suspect]
     Active Substance: METHYLPHENIDATE HYDROCHLORIDE
     Indication: OFF LABEL USE

REACTIONS (3)
  - Psychiatric decompensation [Unknown]
  - Drug dependence [Unknown]
  - Drug abuse [Unknown]
